FAERS Safety Report 5287657-0 (Version None)
Quarter: 2007Q1

REPORT INFORMATION
  Report Type: 
  Country: None (occurrence: None)
  Receive Date: 20070105
  Receipt Date: 20060908
  Transmission Date: 20070707
  Serious: Yes (Other)
  Sender: FDA-Public Use
  Company Number: US-JNJFOC-20060804454

PATIENT
  Age: 30 Year
  Sex: Female
  Weight: 58.9676 kg

DRUGS (9)
  1. ULTRAM ER [Suspect]
     Indication: PAIN
     Dosage: 1 IN 1 DAY, ORAL
     Route: 048
     Dates: start: 20060101, end: 20060101
  2. LYRICA (ANTIEPLEPTICS) [Concomitant]
  3. PERCOCET [Concomitant]
  4. MOTRIN [Concomitant]
  5. LEXAPRO [Concomitant]
  6. DEPAKOTE [Concomitant]
  7. LORAZEPAM [Concomitant]
  8. ACIPHEX [Concomitant]
  9. PHENERGAN [Concomitant]

REACTIONS (5)
  - LOWER LIMB FRACTURE [None]
  - NECK INJURY [None]
  - PAIN [None]
  - ROAD TRAFFIC ACCIDENT [None]
  - SYNCOPE [None]
